FAERS Safety Report 15670820 (Version 1)
Quarter: 2018Q4

REPORT INFORMATION
  Report Type: Spontaneous
  Country: SE (occurrence: SE)
  Receive Date: 20181129
  Receipt Date: 20181129
  Transmission Date: 20190205
  Serious: Yes (Hospitalization)
  Sender: FDA-Public Use
  Company Number: PHHY2018SE168503

PATIENT
  Age: 47 Year
  Sex: Male

DRUGS (8)
  1. DALACIN [Suspect]
     Active Substance: CLINDAMYCIN
     Dosage: UNK
     Route: 065
     Dates: start: 20100429, end: 201005
  2. DALACIN [Suspect]
     Active Substance: CLINDAMYCIN
     Indication: PRODUCT USED FOR UNKNOWN INDICATION
     Route: 065
  3. ENALAPRIL ACTAVIS [Concomitant]
     Active Substance: ENALAPRIL
     Indication: PRODUCT USED FOR UNKNOWN INDICATION
     Route: 065
  4. CLAFORAN [Suspect]
     Active Substance: CEFOTAXIME SODIUM
     Indication: INFECTION
     Dosage: UNK
     Route: 065
     Dates: start: 20100429, end: 201005
  5. MERONEM [Suspect]
     Active Substance: MEROPENEM
     Indication: PRODUCT USED FOR UNKNOWN INDICATION
     Dosage: UNK
     Route: 042
     Dates: start: 201005, end: 20100525
  6. FELODIPIN ACTAVIS [Concomitant]
     Indication: PRODUCT USED FOR UNKNOWN INDICATION
     Route: 065
  7. METHOTREXATE. [Suspect]
     Active Substance: METHOTREXATE
     Indication: PRODUCT USED FOR UNKNOWN INDICATION
     Route: 065
  8. METRONIDAZOL ACTAVIS [Suspect]
     Active Substance: METRONIDAZOLE
     Indication: PRODUCT USED FOR UNKNOWN INDICATION
     Route: 065
     Dates: start: 20100522, end: 20100525

REACTIONS (6)
  - Rash [Recovered/Resolved]
  - Gamma-glutamyltransferase increased [Recovered/Resolved]
  - Pruritus [Recovered/Resolved]
  - Abscess [Recovered/Resolved]
  - Bacterial infection [Recovered/Resolved]
  - Blood alkaline phosphatase increased [Recovered/Resolved]

NARRATIVE: CASE EVENT DATE: 20100428
